FAERS Safety Report 23455940 (Version 1)
Quarter: 2024Q1

REPORT INFORMATION
  Report Type: Spontaneous
  Country: RU (occurrence: RU)
  Receive Date: 20240130
  Receipt Date: 20240130
  Transmission Date: 20240409
  Serious: Yes (Other)
  Sender: FDA-Public Use
  Company Number: None

PATIENT
  Age: 46 Year
  Sex: Male

DRUGS (3)
  1. APIDRA SOLOSTAR [Suspect]
     Active Substance: INSULIN GLULISINE
  2. INSULIN ASPART [Suspect]
     Active Substance: INSULIN ASPART
     Dosage: UNK
  3. INSULIN LISPRO [Suspect]
     Active Substance: INSULIN LISPRO
     Dosage: UNK

REACTIONS (2)
  - Pruritus [Recovering/Resolving]
  - Hyperglycaemia [Recovering/Resolving]
